FAERS Safety Report 16167393 (Version 26)
Quarter: 2022Q3

REPORT INFORMATION
  Report Type: Report from Study
  Country: US (occurrence: US)
  Receive Date: 20190408
  Receipt Date: 20220701
  Transmission Date: 20221027
  Serious: Yes (Death, Life-Threatening, Hospitalization, Disabling, Other)
  Sender: FDA-Public Use
  Company Number: US-INCYTE CORPORATION-2019IN002230

PATIENT

DRUGS (40)
  1. JAKAFI [Suspect]
     Active Substance: RUXOLITINIB
     Indication: Essential thrombocythaemia
     Dosage: 5 MG AM AND 10 MG PM
     Route: 048
     Dates: start: 20180911, end: 20201225
  2. JAKAFI [Suspect]
     Active Substance: RUXOLITINIB
     Indication: Myelofibrosis
     Dosage: 5 MILLIGRAM, BID
     Route: 048
     Dates: start: 20181120
  3. JAKAFI [Suspect]
     Active Substance: RUXOLITINIB
     Dosage: 5 MG TABLETS, TWO TABLETS TWICE DAILY
     Route: 048
  4. JAKAFI [Suspect]
     Active Substance: RUXOLITINIB
     Dosage: 5 MILLIGRAM, BID
     Route: 048
     Dates: start: 20181201, end: 20181221
  5. JAKAFI [Suspect]
     Active Substance: RUXOLITINIB
     Dosage: 5 MILLIGRAM, QD
     Route: 048
     Dates: start: 20181222, end: 20190328
  6. JAKAFI [Suspect]
     Active Substance: RUXOLITINIB
     Dosage: 5 MILLIGRAM, BID
     Route: 048
     Dates: start: 20190520
  7. JAKAFI [Suspect]
     Active Substance: RUXOLITINIB
     Dosage: 5MG IN THE MORNING AND 10MG AT NIGHT
     Route: 048
  8. JAKAFI [Suspect]
     Active Substance: RUXOLITINIB
     Dosage: 5MG IN THE MORNING AND 10MG AT NIGHT
     Route: 048
  9. JAKAFI [Suspect]
     Active Substance: RUXOLITINIB
     Dosage: 5 MILLIGRAM 1 QAM, 2 QPM
     Route: 048
     Dates: start: 20190325
  10. JAKAFI [Suspect]
     Active Substance: RUXOLITINIB
     Dosage: 10 MILLIGRAM, QPM
     Route: 048
     Dates: start: 20210101, end: 20210119
  11. JAKAFI [Suspect]
     Active Substance: RUXOLITINIB
     Dosage: UNK
     Route: 065
     Dates: end: 20210120
  12. HYDREA [Suspect]
     Active Substance: HYDROXYUREA
     Indication: Essential thrombocythaemia
     Dosage: 500 MILLIGRAM, QD
     Route: 048
     Dates: start: 20150601
  13. HYDREA [Suspect]
     Active Substance: HYDROXYUREA
     Dosage: 500 MILLIGRAM, QD
     Route: 048
     Dates: start: 201607
  14. AGRYLIN [Concomitant]
     Active Substance: ANAGRELIDE HYDROCHLORIDE
     Indication: Essential thrombocythaemia
     Dosage: 1 MILLIGRAM, BID
     Route: 048
     Dates: start: 2016
  15. ASPIRIN [Concomitant]
     Active Substance: ASPIRIN
     Indication: Essential thrombocythaemia
     Dosage: 81 MILLIGRAM, QD
     Route: 048
  16. ASPIRIN [Concomitant]
     Active Substance: ASPIRIN
     Indication: Cardiac disorder
  17. COUMADIN                           /00014802/ [Concomitant]
     Indication: Atrial fibrillation
     Dosage: 5 MILLIGRAM, QD
     Route: 048
     Dates: start: 201407
  18. COUMADIN                           /00014802/ [Concomitant]
     Dosage: 7.5 MILLIGRAM
     Route: 065
     Dates: start: 20201013, end: 20210124
  19. COUMADIN                           /00014802/ [Concomitant]
     Dosage: 5 MILLIGRAM
     Route: 065
     Dates: start: 20201013, end: 20210124
  20. TOPROL XL [Concomitant]
     Active Substance: METOPROLOL SUCCINATE
     Indication: Hypertension
     Dosage: 25 MILLIGRAM, QD
     Route: 048
     Dates: start: 2014
  21. VALIUM [Concomitant]
     Active Substance: DIAZEPAM
     Indication: Anxiety
     Dosage: 5 MILLIGRAM, QD
     Route: 048
     Dates: start: 201809
  22. VALIUM [Concomitant]
     Active Substance: DIAZEPAM
     Indication: Cardiac disorder
  23. ANAGRELIDE [Concomitant]
     Active Substance: ANAGRELIDE
     Indication: Essential thrombocythaemia
     Dosage: 0.5 MILLIGRAM, BID
     Route: 065
     Dates: start: 20180813
  24. BRILINTA [Concomitant]
     Active Substance: TICAGRELOR
     Indication: Product used for unknown indication
     Route: 065
  25. CARDIZEM                           /00489701/ [Concomitant]
     Indication: Product used for unknown indication
     Route: 065
  26. PRILOSEC [Concomitant]
     Active Substance: OMEPRAZOLE MAGNESIUM
     Indication: Product used for unknown indication
     Route: 065
  27. PRAVASTATIN [Concomitant]
     Active Substance: PRAVASTATIN
     Indication: Product used for unknown indication
     Dosage: UNK, ON MONDAYS/WEDNESDAYS/FRIDAYS
     Route: 065
  28. METOPROLOL [Concomitant]
     Active Substance: METOPROLOL
     Indication: Hypertension
     Dosage: 25 MILLIGRAM, QD
     Route: 065
     Dates: start: 20170101, end: 20210131
  29. WARFARIN [Concomitant]
     Active Substance: WARFARIN
     Indication: Atrial fibrillation
     Dosage: 5 MILLIGRAM, QD
     Route: 065
     Dates: start: 20130101, end: 20200616
  30. WARFARIN [Concomitant]
     Active Substance: WARFARIN
     Dosage: 7.5 MILLIGRAM, QD
     Route: 065
     Dates: start: 20200717, end: 20200718
  31. WARFARIN [Concomitant]
     Active Substance: WARFARIN
     Dosage: 5 MILLIGRAM, QD
     Route: 065
     Dates: start: 20200719, end: 20201225
  32. AMLODIPINE [Concomitant]
     Active Substance: AMLODIPINE BESYLATE
     Indication: Product used for unknown indication
     Route: 065
  33. LOSARTAN [Concomitant]
     Active Substance: LOSARTAN
     Indication: Product used for unknown indication
     Route: 065
  34. HYDROCHLOROTHIAZIDE [Concomitant]
     Active Substance: HYDROCHLOROTHIAZIDE
     Indication: Product used for unknown indication
     Route: 065
  35. FINASTERIDE [Concomitant]
     Active Substance: FINASTERIDE
     Indication: Product used for unknown indication
     Route: 065
  36. MECLIZINE [Concomitant]
     Active Substance: MECLIZINE HYDROCHLORIDE
     Indication: Product used for unknown indication
     Route: 065
  37. PLAVIX [Concomitant]
     Active Substance: CLOPIDOGREL BISULFATE
     Indication: Product used for unknown indication
     Route: 065
  38. TRAMADOL [Concomitant]
     Active Substance: TRAMADOL
     Indication: Pain in extremity
     Dosage: 50 MILLIGRAM, PRN
     Route: 065
     Dates: start: 20200408
  39. TRAMADOL [Concomitant]
     Active Substance: TRAMADOL
     Indication: Peripheral swelling
  40. EXJADE [Concomitant]
     Active Substance: DEFERASIROX
     Indication: Product used for unknown indication
     Route: 065

REACTIONS (56)
  - Multiple organ dysfunction syndrome [Fatal]
  - Encephalopathy [Recovered/Resolved]
  - Febrile neutropenia [Recovered/Resolved]
  - White blood cell count decreased [Recovered/Resolved]
  - Myocardial infarction [Not Recovered/Not Resolved]
  - Nephrolithiasis [Not Recovered/Not Resolved]
  - Myocardial ischaemia [Recovered/Resolved]
  - Lymphoedema [Recovered/Resolved]
  - Pain in extremity [Recovered/Resolved]
  - Cerebrovascular accident [Not Recovered/Not Resolved]
  - Post procedural haemorrhage [Recovered/Resolved]
  - Post procedural haemorrhage [Recovered/Resolved]
  - Nephrolithiasis [Recovered/Resolved]
  - Syncope [Recovered/Resolved]
  - Sepsis [Recovered/Resolved]
  - Metabolic encephalopathy [Recovered/Resolved]
  - International normalised ratio increased [Recovered/Resolved]
  - Hypoxia [Recovered/Resolved]
  - Muscular weakness [Not Recovered/Not Resolved]
  - Pneumonia [Recovered/Resolved]
  - Immune system disorder [Recovered/Resolved]
  - Atrial fibrillation [Recovered/Resolved]
  - International normalised ratio increased [Recovered/Resolved]
  - Platelet count decreased [Recovered/Resolved]
  - Anaemia [Recovered/Resolved]
  - Anaemia [Recovered/Resolved]
  - Anaemia [Recovered/Resolved]
  - Platelet count decreased [Not Recovered/Not Resolved]
  - Anaemia [Recovered/Resolved]
  - Anaemia [Not Recovered/Not Resolved]
  - Anaemia [Not Recovered/Not Resolved]
  - Anaemia [Not Recovered/Not Resolved]
  - Blood disorder [Not Recovered/Not Resolved]
  - Blood urine present [Not Recovered/Not Resolved]
  - International normalised ratio abnormal [Unknown]
  - Oedema peripheral [Recovered/Resolved]
  - Platelet count decreased [Not Recovered/Not Resolved]
  - Diarrhoea [Recovered/Resolved]
  - Pain in extremity [Recovered/Resolved]
  - Iron overload [Not Recovered/Not Resolved]
  - Post micturition dribble [Not Recovered/Not Resolved]
  - Bone pain [Not Recovered/Not Resolved]
  - Haematuria [Recovered/Resolved]
  - Weight decreased [Not Recovered/Not Resolved]
  - Flank pain [Not Recovered/Not Resolved]
  - Lymphoedema [Not Recovered/Not Resolved]
  - Arthritis [Recovered/Resolved]
  - Pyrexia [Recovered/Resolved]
  - International normalised ratio increased [Recovering/Resolving]
  - International normalised ratio abnormal [Recovered/Resolved]
  - Dyspnoea [Not Recovered/Not Resolved]
  - Diarrhoea [Recovered/Resolved]
  - Anaemia [Recovered/Resolved]
  - Anaemia [Recovered/Resolved]
  - Anaemia [Recovered/Resolved]
  - Anaemia [Not Recovered/Not Resolved]

NARRATIVE: CASE EVENT DATE: 20190226
